FAERS Safety Report 6604763-6 (Version None)
Quarter: 2010Q1

REPORT INFORMATION
  Report Type: 
  Country: None (occurrence: None)
  Receive Date: 20100226
  Receipt Date: 20091223
  Transmission Date: 20100710
  Serious: No
  Sender: FDA-Public Use
  Company Number: US-BRISTOL-MYERS SQUIBB COMPANY-14909840

PATIENT
  Age: 66 Year
  Sex: Male

DRUGS (4)
  1. ONGLYZA [Suspect]
  2. GLYBURIDE [Concomitant]
  3. CRESTOR [Concomitant]
  4. MICARDIS [Concomitant]

REACTIONS (1)
  - ABDOMINAL PAIN [None]
